FAERS Safety Report 8484638-0 (Version None)
Quarter: 2012Q3

REPORT INFORMATION
  Report Type: 
  Country: None (occurrence: None)
  Receive Date: 20120703
  Receipt Date: 20120509
  Transmission Date: 20120928
  Serious: No
  Sender: FDA-Public Use
  Company Number: US-TEVA-333923USA

PATIENT
  Sex: Female
  Weight: 72.64 kg

DRUGS (11)
  1. AXOTAL [Concomitant]
     Indication: MIGRAINE
     Dosage: AS NEEDED
     Route: 048
  2. NUVIGIL [Suspect]
     Indication: NARCOLEPSY
     Dosage: STARTED 150 MG IN FALL 2011, SPORADIC USE
     Route: 048
     Dates: end: 20120410
  3. NUVIGIL [Suspect]
     Indication: CATAPLEXY
     Dosage: 150 MG, REGULAR USE
     Route: 048
     Dates: start: 20111201
  4. ROSUVASTATIN [Concomitant]
     Indication: BLOOD CHOLESTEROL INCREASED
     Route: 048
     Dates: start: 20120301, end: 20120401
  5. ATORVASTATIN CALCIUM [Concomitant]
  6. SERTRALINE HYDROCHLORIDE [Concomitant]
     Indication: DEPRESSION
     Route: 048
  7. LEVALBUTEROL HYDROCHLORIDE [Concomitant]
     Indication: DYSPNOEA
     Dates: start: 20110301
  8. VITAMIN D SUPPLEMENT [Concomitant]
     Indication: HYPOVITAMINOSIS
     Dosage: 5,000 TO 10,000
     Dates: start: 20110401
  9. ALMOTRIPTAN MALATE [Concomitant]
     Indication: MIGRAINE
     Dosage: AS NEEDED
  10. TRAMADOL HCL [Concomitant]
  11. SUMATRIPTAN [Concomitant]
     Indication: MIGRAINE
     Dosage: AS NEEDED

REACTIONS (3)
  - BLOOD CHOLESTEROL INCREASED [None]
  - MIGRAINE [None]
  - VITAMIN D ABNORMAL [None]
